FAERS Safety Report 8511909-1 (Version None)
Quarter: 2012Q3

REPORT INFORMATION
  Report Type: 
  Country: None (occurrence: None)
  Receive Date: 20120716
  Receipt Date: 20120711
  Transmission Date: 20120928
  Serious: Yes (Hospitalization)
  Sender: FDA-Public Use
  Company Number: FR-PFIZER INC-2012165922

PATIENT
  Age: 32 Year
  Sex: Female

DRUGS (2)
  1. EFFEXOR [Suspect]
     Indication: DEPRESSION
     Dosage: 37.5 MG, SINGLE
     Route: 048
     Dates: start: 20120607, end: 20120607
  2. XANAX [Suspect]
     Indication: ANXIETY
     Dosage: MAXIMALLY TWO DF OF 0.25 MG, IF NEEDED
     Route: 048
     Dates: start: 20120607, end: 20120607

REACTIONS (6)
  - DECREASED APPETITE [None]
  - DIARRHOEA [None]
  - SYNCOPE [None]
  - NAUSEA [None]
  - VOMITING [None]
  - ASTHENIA [None]
